FAERS Safety Report 10221553 (Version 4)
Quarter: 2014Q3

REPORT INFORMATION
  Report Type: Spontaneous
  Country: DE (occurrence: DE)
  Receive Date: 20140606
  Receipt Date: 20140806
  Transmission Date: 20150326
  Serious: Yes (Death, Life-Threatening, Hospitalization, Other)
  Sender: FDA-Public Use
  Company Number: DE-BIOGENIDEC-2014BI052248

PATIENT
  Age: 42 Year
  Sex: Female
  Weight: 65 kg

DRUGS (1)
  1. TECFIDERA [Suspect]
     Active Substance: DIMETHYL FUMARATE
     Indication: MULTIPLE SCLEROSIS
     Route: 048
     Dates: start: 20140311

REACTIONS (9)
  - Headache [Unknown]
  - Brain oedema [Unknown]
  - Convulsion [Unknown]
  - Loss of consciousness [Unknown]
  - Angiopathy [Unknown]
  - Myocardial infarction [Fatal]
  - Angina pectoris [Unknown]
  - Neck pain [Unknown]
  - Brain death [Fatal]

NARRATIVE: CASE EVENT DATE: 20140522
